FAERS Safety Report 9869263 (Version 5)
Quarter: 2014Q2

REPORT INFORMATION
  Report Type: Spontaneous
  Country: JP (occurrence: JP)
  Receive Date: 20140205
  Receipt Date: 20140514
  Transmission Date: 20141212
  Serious: Yes (Other)
  Sender: FDA-Public Use
  Company Number: JP-ROCHE-1341857

PATIENT
  Age: 37 Year
  Sex: Female
  Weight: 49 kg

DRUGS (7)
  1. DORMICUM (INJ) [Suspect]
     Indication: SEDATIVE THERAPY
     Route: 042
     Dates: start: 20140123, end: 20140123
  2. ANEXATE [Suspect]
     Indication: REVERSAL OF SEDATION
     Route: 042
     Dates: start: 20140123, end: 20140123
  3. ERIMIN [Suspect]
     Indication: PRODUCT USED FOR UNKNOWN INDICATION
     Dosage: BEDTIME ALMOST EVERY NIGHT
     Route: 048
  4. MEILAX [Suspect]
     Indication: PRODUCT USED FOR UNKNOWN INDICATION
     Dosage: ALMOST EVERY NIGHT
     Route: 048
  5. EVAMYL [Suspect]
     Indication: PRODUCT USED FOR UNKNOWN INDICATION
     Dosage: BEDTIME ALMOST EVERY NIGHT
     Route: 048
  6. REFLEX (JAPAN) [Suspect]
     Indication: PRODUCT USED FOR UNKNOWN INDICATION
     Route: 048
  7. MYSLEE [Suspect]
     Indication: INSOMNIA
     Route: 048

REACTIONS (3)
  - Facial spasm [Recovered/Resolved]
  - Drug withdrawal syndrome [Recovered/Resolved]
  - Off label use [Unknown]
